FAERS Safety Report 6173000-1 (Version None)
Quarter: 2009Q2

REPORT INFORMATION
  Report Type: 
  Country: None (occurrence: None)
  Receive Date: 20090430
  Receipt Date: 20090330
  Transmission Date: 20091009
  Serious: No
  Sender: FDA-Public Use
  Company Number: US-BAYER-200911027BCC

PATIENT
  Age: 70 Year
  Sex: Female
  Weight: 102 kg

DRUGS (7)
  1. ALEVE [Suspect]
     Indication: ARTHRALGIA
     Dosage: UNIT DOSE: 220 MG
     Route: 048
     Dates: start: 20090325, end: 20090327
  2. ALEVE [Suspect]
     Route: 048
     Dates: start: 20090330, end: 20090330
  3. ZERGIRID [Concomitant]
     Indication: DRUG USE FOR UNKNOWN INDICATION
     Dosage: UNIT DOSE: 60 MG
  4. KEPPRA [Concomitant]
     Indication: DRUG USE FOR UNKNOWN INDICATION
     Dosage: TOTAL DAILY DOSE: 500 MG  UNIT DOSE: 250 MG
  5. SYMBALTA [Concomitant]
     Indication: DRUG USE FOR UNKNOWN INDICATION
     Dosage: TOTAL DAILY DOSE: 60 MG  UNIT DOSE: 60 MG
  6. SINGULAIR [Concomitant]
     Indication: DRUG USE FOR UNKNOWN INDICATION
     Dosage: TOTAL DAILY DOSE: 10 MG  UNIT DOSE: 10 MG
  7. DARVOCET 100-65 MALL [Concomitant]
     Indication: PAIN
     Dosage: EVERY 8 HOURS IF NEEDED
     Dates: start: 20090327, end: 20090330

REACTIONS (2)
  - PRURITUS [None]
  - RASH [None]
